FAERS Safety Report 4692666-6 (Version None)
Quarter: 2005Q2

REPORT INFORMATION
  Report Type: 
  Country: None (occurrence: None)
  Receive Date: 20050617
  Receipt Date: 20050610
  Transmission Date: 20051028
  Serious: Yes (Other)
  Sender: FDA-Public Use
  Company Number: US-MERCK-0506USA02014

PATIENT
  Sex: Male

DRUGS (1)
  1. VIOXX [Suspect]
     Route: 048
     Dates: start: 19990701, end: 20030601

REACTIONS (3)
  - GASTROINTESTINAL HAEMORRHAGE [None]
  - INJURY [None]
  - MYOCARDIAL INFARCTION [None]
